FAERS Safety Report 18609046 (Version 1)
Quarter: 2020Q4

REPORT INFORMATION
  Report Type: Spontaneous
  Country: US (occurrence: US)
  Receive Date: 20201214
  Receipt Date: 20201214
  Transmission Date: 20210114
  Serious: Yes (Hospitalization)
  Sender: FDA-Public Use
  Company Number: US-JNJFOC-20201210221

PATIENT

DRUGS (2)
  1. CAMPHOR/MENTHOL/METHYL SALICYLATE [Suspect]
     Active Substance: CAMPHOR\MENTHOL\METHYL SALICYLATE
     Indication: PRODUCT USED FOR UNKNOWN INDICATION
     Route: 048
  2. MENTHOL/METHYL SALICYLATE [Suspect]
     Active Substance: MENTHOL\METHYL SALICYLATE
     Indication: PRODUCT USED FOR UNKNOWN INDICATION
     Route: 048

REACTIONS (10)
  - Vomiting [Unknown]
  - Toxicity to various agents [Unknown]
  - Abdominal discomfort [Unknown]
  - Accidental exposure to product [Unknown]
  - Sedation [Unknown]
  - Nausea [Unknown]
  - Tachypnoea [Unknown]
  - Agitation [Unknown]
  - Metabolic acidosis [Unknown]
  - Stomatitis [Unknown]
